FAERS Safety Report 5773491-1 (Version None)
Quarter: 2008Q2

REPORT INFORMATION
  Report Type: 
  Country: None (occurrence: None)
  Receive Date: 20080616
  Receipt Date: 20080306
  Transmission Date: 20081010
  Serious: No
  Sender: FDA-Public Use
  Company Number: US-BAYER-200811017BCC

PATIENT
  Age: 82 Year
  Sex: Female
  Weight: 86 kg

DRUGS (2)
  1. ALEVE [Suspect]
     Indication: ARTHRITIS
     Dosage: TOTAL DAILY DOSE: 220 MG  UNIT DOSE: 220 MG
     Route: 048
  2. ALEVE [Concomitant]
     Indication: ARTHRITIS

REACTIONS (1)
  - ARTHRITIS [None]
